FAERS Safety Report 13739004 (Version 1)
Quarter: 2017Q3

REPORT INFORMATION
  Report Type: Report from Study
  Country: US (occurrence: US)
  Receive Date: 20170710
  Receipt Date: 20170710
  Transmission Date: 20171127
  Serious: Yes (Hospitalization, Other)
  Sender: FDA-Public Use
  Company Number: US-SAOL THERAPEUTICS-2017SAO00106

PATIENT
  Age: 37 Year
  Sex: Male

DRUGS (4)
  1. DILAUDID [Suspect]
     Active Substance: HYDROMORPHONE HYDROCHLORIDE
     Dosage: 0.4006 MG, \DAY
     Route: 037
     Dates: start: 20160707, end: 20161004
  2. BACLOFEN. [Suspect]
     Active Substance: BACLOFEN
     Dosage: 400.6 ?G, \DAY
     Route: 037
     Dates: start: 20160707, end: 20161004
  3. BACLOFEN. [Suspect]
     Active Substance: BACLOFEN
     Dosage: 340.5 ?G, \DAY
     Route: 037
     Dates: start: 20161004
  4. DILAUDID [Suspect]
     Active Substance: HYDROMORPHONE HYDROCHLORIDE
     Dosage: 0.3405 MG, \DAY
     Route: 037
     Dates: start: 20161004

REACTIONS (3)
  - Therapy non-responder [Recovered/Resolved]
  - Drug withdrawal syndrome [Recovered/Resolved]
  - Device failure [Recovered/Resolved]

NARRATIVE: CASE EVENT DATE: 20161230
